FAERS Safety Report 6232426-8 (Version None)
Quarter: 2009Q2

REPORT INFORMATION
  Report Type: 
  Country: None (occurrence: None)
  Receive Date: 20090615
  Receipt Date: 20090615
  Transmission Date: 20091009
  Serious: No
  Sender: FDA-Public Use
  Company Number: None

PATIENT
  Age: 69 Year
  Sex: Female
  Weight: 60.782 kg

DRUGS (1)
  1. ARIMIDEX [Suspect]
     Indication: BREAST CANCER
     Dosage: 1-A-DAY
     Dates: start: 20070601

REACTIONS (16)
  - ABDOMINAL DISCOMFORT [None]
  - ANOREXIA [None]
  - BONE PAIN [None]
  - CHILLS [None]
  - DEPRESSION [None]
  - DIZZINESS [None]
  - DRY MOUTH [None]
  - DYSPNOEA [None]
  - FATIGUE [None]
  - HOT FLUSH [None]
  - HYPOAESTHESIA [None]
  - INSOMNIA [None]
  - PRODUCT TASTE ABNORMAL [None]
  - SUICIDAL IDEATION [None]
  - SWOLLEN TONGUE [None]
  - VISUAL IMPAIRMENT [None]
